FAERS Safety Report 23953032 (Version 3)
Quarter: 2024Q2

REPORT INFORMATION
  Report Type: Spontaneous
  Country: US (occurrence: US)
  Receive Date: 20240608
  Receipt Date: 20240613
  Transmission Date: 20240716
  Serious: No
  Sender: FDA-Public Use
  Company Number: US-ABBVIE-5789682

PATIENT

DRUGS (1)
  1. LASTACAFT [Suspect]
     Active Substance: ALCAFTADINE
     Indication: Product used for unknown indication
     Route: 047

REACTIONS (4)
  - Pruritus allergic [Not Recovered/Not Resolved]
  - Unevaluable event [Unknown]
  - Drug hypersensitivity [Not Recovered/Not Resolved]
  - Ocular hyperaemia [Not Recovered/Not Resolved]
